FAERS Safety Report 11872405 (Version 1)
Quarter: 2015Q4

REPORT INFORMATION
  Report Type: Spontaneous
  Country: ES (occurrence: ES)
  Receive Date: 20151228
  Receipt Date: 20151228
  Transmission Date: 20160305
  Serious: Yes (Other)
  Sender: FDA-Public Use
  Company Number: ES-PFIZER INC-2015466365

PATIENT
  Age: 41 Year
  Sex: Female
  Weight: 55 kg

DRUGS (1)
  1. DALACIN [Suspect]
     Active Substance: CLINDAMYCIN\CLINDAMYCIN PHOSPHATE
     Indication: VAGINITIS BACTERIAL
     Dosage: 100 MG, 1X/DAY
     Route: 067
     Dates: start: 20151019, end: 20151021

REACTIONS (2)
  - Paresis [Recovering/Resolving]
  - VIIth nerve paralysis [Recovering/Resolving]

NARRATIVE: CASE EVENT DATE: 20151022
